FAERS Safety Report 4368678-9 (Version None)
Quarter: 2004Q2

REPORT INFORMATION
  Report Type: 
  Country: None (occurrence: None)
  Receive Date: 20040602
  Receipt Date: 20040518
  Transmission Date: 20050107
  Serious: Yes (Congenital Anomaly)
  Sender: FDA-Public Use
  Company Number: 04P-056-0261198-00

PATIENT
  Age: 12 Year
  Sex: Male

DRUGS (1)
  1. DEPAKENE [Suspect]

REACTIONS (9)
  - CONGENITAL HAND MALFORMATION [None]
  - CUSHINGOID [None]
  - DEVELOPMENTAL DELAY [None]
  - DRUG EXPOSURE DURING PREGNANCY [None]
  - EAR MALFORMATION [None]
  - FACIAL DYSMORPHISM [None]
  - MYOPIA [None]
  - PSYCHOTIC DISORDER [None]
  - VISUAL ACUITY REDUCED [None]
